FAERS Safety Report 4294318-3 (Version None)
Quarter: 2004Q1

REPORT INFORMATION
  Report Type: 
  Country: None (occurrence: None)
  Receive Date: 20040211
  Receipt Date: 20030516
  Transmission Date: 20041129
  Serious: Yes (Hospitalization)
  Sender: FDA-Public Use
  Company Number: A0408646A

PATIENT
  Age: 61 Year
  Sex: Male

DRUGS (1)
  1. MELPHALAN INJECTION (MELPHALAN) [Suspect]
     Indication: MULTIPLE MYELOMA
     Dosage: 400 MG, INTRAVENOUS
     Route: 042
     Dates: start: 20030427, end: 20030427

REACTIONS (9)
  - C-REACTIVE PROTEIN INCREASED [None]
  - DIARRHOEA [None]
  - FEBRILE NEUTROPENIA [None]
  - ORTHOSTATIC HYPOTENSION [None]
  - STAPHYLOCOCCAL BACTERAEMIA [None]
  - STEM CELL TRANSPLANT [None]
  - TACHYCARDIA [None]
  - THROMBOCYTOPENIA [None]
  - WHITE BLOOD CELL COUNT DECREASED [None]
